FAERS Safety Report 19611065 (Version 3)
Quarter: 2021Q3

REPORT INFORMATION
  Report Type: Report from Study
  Country: US (occurrence: US)
  Receive Date: 20210726
  Receipt Date: 20210823
  Transmission Date: 20211014
  Serious: No
  Sender: FDA-Public Use
  Company Number: NVSC2021US166561

PATIENT
  Sex: Female

DRUGS (2)
  1. KISQALI FEMARA CO?PACK [Suspect]
     Active Substance: LETROZOLE\RIBOCICLIB
     Indication: BREAST CANCER
     Dosage: 400 MG, QD
     Route: 048
  2. FEMARA [Suspect]
     Active Substance: LETROZOLE
     Indication: BREAST CANCER
     Dosage: 2.5 MG, QD
     Route: 048

REACTIONS (5)
  - Dry skin [Unknown]
  - Fatigue [Unknown]
  - Dizziness [Unknown]
  - Pruritus [Unknown]
  - Nausea [Unknown]
